FAERS Safety Report 13711484 (Version 1)
Quarter: 2017Q3

REPORT INFORMATION
  Report Type: Spontaneous
  Country: US (occurrence: US)
  Receive Date: 20170703
  Receipt Date: 20170703
  Transmission Date: 20171127
  Serious: No
  Sender: FDA-Public Use
  Company Number: PHEH2017US019035

PATIENT
  Sex: Female

DRUGS (1)
  1. MYCOPHENOLIC ACID. [Suspect]
     Active Substance: MYCOPHENOLIC ACID
     Indication: PRODUCT USED FOR UNKNOWN INDICATION
     Dosage: 2 DF, BID
     Route: 048

REACTIONS (5)
  - Feeling abnormal [Unknown]
  - Diarrhoea [Unknown]
  - Nausea [Unknown]
  - Weight decreased [Unknown]
  - Abdominal pain upper [Unknown]
